FAERS Safety Report 12156520 (Version 1)
Quarter: 2016Q1

REPORT INFORMATION
  Report Type: Spontaneous
  Country: ZA (occurrence: ZA)
  Receive Date: 20160307
  Receipt Date: 20160307
  Transmission Date: 20160526
  Serious: Yes (Hospitalization, Other)
  Sender: FDA-Public Use
  Company Number: ZA-MYLANLABS-2016M1009686

PATIENT

DRUGS (3)
  1. STAVUDINE. [Suspect]
     Active Substance: STAVUDINE
     Indication: ANTIRETROVIRAL THERAPY
     Dosage: 30 MG, UNK
     Route: 048
     Dates: start: 20070705
  2. LAMIVUDINE MYLAN [Suspect]
     Active Substance: LAMIVUDINE
     Indication: ANTIRETROVIRAL THERAPY
     Dosage: 150 MG, UNK
     Route: 048
     Dates: start: 20070705
  3. EFAVIRENZ MYLAN [Suspect]
     Active Substance: EFAVIRENZ
     Indication: ANTIRETROVIRAL THERAPY
     Dosage: 600 MG, UNK
     Route: 048
     Dates: start: 20070705

REACTIONS (6)
  - Alanine aminotransferase increased [Unknown]
  - CD4 lymphocytes decreased [Unknown]
  - Blood creatine increased [Unknown]
  - Ocular icterus [Unknown]
  - Haemoglobin decreased [Unknown]
  - Vomiting [Unknown]

NARRATIVE: CASE EVENT DATE: 20140625
